FAERS Safety Report 6228431-8 (Version None)
Quarter: 2009Q2

REPORT INFORMATION
  Report Type: 
  Country: None (occurrence: None)
  Receive Date: 20090612
  Receipt Date: 20090603
  Transmission Date: 20091009
  Serious: Yes (Hospitalization, Other)
  Sender: FDA-Public Use
  Company Number: US-ELI_LILLY_AND_COMPANY-US200811001006

PATIENT
  Sex: Female
  Weight: 61.678 kg

DRUGS (7)
  1. FORTEO [Suspect]
     Indication: OSTEOPOROSIS
     Dosage: 20 UG, DAILY (1/D)
     Dates: start: 20080301
  2. CALCIUM W/VITAMIN D NOS [Concomitant]
  3. VALTREX [Concomitant]
  4. COUMADIN [Concomitant]
  5. URSO 250 [Concomitant]
  6. MOTRIN [Concomitant]
  7. COREG [Concomitant]

REACTIONS (2)
  - ATRIAL FIBRILLATION [None]
  - FALL [None]
